FAERS Safety Report 9722311 (Version 3)
Quarter: 2013Q4

REPORT INFORMATION
  Report Type: Spontaneous
  Country: US (occurrence: US)
  Receive Date: 20131202
  Receipt Date: 20131209
  Transmission Date: 20140711
  Serious: Yes (Hospitalization)
  Sender: FDA-Public Use
  Company Number: US-JNJFOC-20131114841

PATIENT
  Age: 70 Year
  Sex: Female
  Weight: 67.2 kg

DRUGS (8)
  1. XARELTO [Suspect]
     Indication: ATRIAL FIBRILLATION
     Route: 048
     Dates: start: 20130215, end: 20130717
  2. XARELTO [Suspect]
     Indication: CEREBROVASCULAR ACCIDENT PROPHYLAXIS
     Route: 048
     Dates: start: 20130215, end: 20130717
  3. SOTALOL [Concomitant]
     Route: 048
     Dates: start: 20120819
  4. AMLODIPINE [Concomitant]
     Route: 048
     Dates: start: 20120920
  5. DIGOXIN [Concomitant]
     Route: 048
     Dates: start: 20130819
  6. CAPTOPRIL [Concomitant]
     Route: 048
  7. FLEXERIL [Concomitant]
     Dosage: AS NECESSARY AT BEDTIME
     Route: 048
     Dates: start: 20130711
  8. MEDROL [Concomitant]
     Dosage: AS DIRECTED ON PACKAGE
     Route: 048
     Dates: start: 20130711

REACTIONS (3)
  - Subdural haematoma [Unknown]
  - Hepatitis A antibody positive [Unknown]
  - Hepatitis B antibody positive [Unknown]
